FAERS Safety Report 5455092-8 (Version None)
Quarter: 2007Q3

REPORT INFORMATION
  Report Type: 
  Country: None (occurrence: None)
  Receive Date: 20070913
  Receipt Date: 20070913
  Transmission Date: 20080115
  Serious: Yes (Other)
  Sender: FDA-Public Use
  Company Number: None

PATIENT
  Age: 31 Year
  Sex: Female
  Weight: 61.2356 kg

DRUGS (2)
  1. PAROXETINE [Suspect]
     Indication: ANXIETY
     Dosage: 20 MGS DAILY PO
     Route: 048
     Dates: start: 20040101, end: 20070902
  2. PAROXETINE [Suspect]
     Indication: DEPRESSION
     Dosage: 20 MGS DAILY PO
     Route: 048
     Dates: start: 20040101, end: 20070902

REACTIONS (11)
  - ANXIETY [None]
  - CRYING [None]
  - DEPENDENCE [None]
  - DIARRHOEA [None]
  - DRUG WITHDRAWAL SYNDROME [None]
  - EYE MOVEMENT DISORDER [None]
  - FEELINGS OF WORTHLESSNESS [None]
  - NAUSEA [None]
  - NERVOUS SYSTEM DISORDER [None]
  - SUICIDAL IDEATION [None]
  - VOMITING [None]
